FAERS Safety Report 26176207 (Version 1)
Quarter: 2025Q4

REPORT INFORMATION
  Report Type: Spontaneous
  Country: CA (occurrence: CA)
  Receive Date: 20251218
  Receipt Date: 20251218
  Transmission Date: 20260117
  Serious: Yes (Death)
  Sender: MYLAN
  Company Number: CA-MYLANLABS-2025M1108441

PATIENT
  Sex: Female

DRUGS (1)
  1. REVATIO [Suspect]
     Active Substance: SILDENAFIL CITRATE
     Indication: Pulmonary arterial hypertension
     Dosage: 20 MILLIGRAM, TID (THREE TIMES A DAY)
     Route: 061
     Dates: start: 20241126

REACTIONS (1)
  - Death [Fatal]
